FAERS Safety Report 9018030 (Version 1)
Quarter: 2013Q1

REPORT INFORMATION
  Report Type: Spontaneous
  Country: FR (occurrence: FR)
  Receive Date: 20130118
  Receipt Date: 20130118
  Transmission Date: 20140127
  Serious: Yes (Hospitalization)
  Sender: FDA-Public Use
  Company Number: FR-009507513-1212FRA011209

PATIENT
  Age: 0 Year
  Sex: Male
  Weight: 8 kg

DRUGS (4)
  1. INVANZ [Suspect]
     Indication: PYELONEPHRITIS
     Dosage: 15 MG/KG, Q12H
     Dates: start: 20121217, end: 20121222
  2. INVANZ [Suspect]
     Indication: KLEBSIELLA INFECTION
  3. TIENAM 500MG/500MG, POUDRE POUR PERFUSION [Concomitant]
     Indication: PYELONEPHRITIS
  4. AMIKLIN [Concomitant]
     Indication: PYELONEPHRITIS

REACTIONS (1)
  - Partial seizures [Recovered/Resolved]
